FAERS Safety Report 13159716 (Version 1)
Quarter: 2017Q1

REPORT INFORMATION
  Report Type: Spontaneous
  Country: US (occurrence: US)
  Receive Date: 20170127
  Receipt Date: 20170127
  Transmission Date: 20170428
  Serious: No
  Sender: FDA-Public Use
  Company Number: US-NORTHSTAR HEALTHCARE HOLDINGS-US-2016NSR000775

PATIENT

DRUGS (9)
  1. METOCLOPRAMIDE HYDROCHLORIDE. [Suspect]
     Active Substance: METOCLOPRAMIDE HYDROCHLORIDE
     Indication: MIGRAINE
     Dosage: 1 TO 2 TABLETS EVERY FOUR HOURS AS NEEDED
     Route: 048
     Dates: start: 201508
  2. MECLIZINE [Concomitant]
     Active Substance: MECLIZINE HYDROCHLORIDE
     Indication: PRODUCT USED FOR UNKNOWN INDICATION
     Dosage: DF
  3. FUROSEMIDE. [Concomitant]
     Active Substance: FUROSEMIDE
     Indication: PRODUCT USED FOR UNKNOWN INDICATION
     Dosage: DF
  4. DIAZEPAM. [Concomitant]
     Active Substance: DIAZEPAM
     Indication: PRODUCT USED FOR UNKNOWN INDICATION
     Dosage: DF
  5. DICYCLOMINE                        /00068601/ [Concomitant]
     Active Substance: DICYCLOMINE HYDROCHLORIDE
     Indication: PRODUCT USED FOR UNKNOWN INDICATION
     Dosage: DF
  6. PERCOCET [Concomitant]
     Active Substance: ACETAMINOPHEN\OXYCODONE HYDROCHLORIDE
     Indication: PRODUCT USED FOR UNKNOWN INDICATION
     Dosage: DF
  7. PHENOBARBITAL. [Concomitant]
     Active Substance: PHENOBARBITAL
     Indication: PRODUCT USED FOR UNKNOWN INDICATION
     Dosage: DF
  8. OMEPRAZOLE. [Concomitant]
     Active Substance: OMEPRAZOLE
     Indication: PRODUCT USED FOR UNKNOWN INDICATION
     Dosage: DF
  9. ADVAIR HFA [Concomitant]
     Active Substance: FLUTICASONE PROPIONATE\SALMETEROL XINAFOATE
     Indication: PRODUCT USED FOR UNKNOWN INDICATION
     Dosage: DF

REACTIONS (3)
  - Dyskinesia [Not Recovered/Not Resolved]
  - Emotional distress [Not Recovered/Not Resolved]
  - Eye movement disorder [Not Recovered/Not Resolved]

NARRATIVE: CASE EVENT DATE: 2015
